FAERS Safety Report 5375054-9 (Version None)
Quarter: 2007Q2

REPORT INFORMATION
  Report Type: 
  Country: None (occurrence: None)
  Receive Date: 20070629
  Receipt Date: 20070403
  Transmission Date: 20071010
  Serious: No
  Sender: FDA-Public Use
  Company Number: A0645765A

PATIENT
  Age: 60 Year
  Sex: Female

DRUGS (11)
  1. AVANDARYL [Suspect]
     Dosage: 1MG TWICE PER DAY
     Route: 048
     Dates: start: 20060101
  2. DETROL LA [Concomitant]
  3. PLAVIX [Concomitant]
  4. DEMADEX [Concomitant]
  5. ZANTAC [Concomitant]
  6. UNKNOWN MEDICATION [Concomitant]
  7. SINGULAIR [Concomitant]
  8. FLONASE [Concomitant]
  9. PULMICORT [Concomitant]
  10. ALBUTEROL [Concomitant]
  11. ADVAIR DISKUS 100/50 [Concomitant]

REACTIONS (1)
  - GLYCOSYLATED HAEMOGLOBIN INCREASED [None]
